FAERS Safety Report 7092639-2 (Version None)
Quarter: 2010Q4

REPORT INFORMATION
  Report Type: 
  Country: None (occurrence: None)
  Receive Date: 20101022
  Receipt Date: 20101022
  Transmission Date: 20110411
  Serious: Yes (Other)
  Sender: FDA-Public Use
  Company Number: None

PATIENT
  Sex: Female
  Weight: 74.8435 kg

DRUGS (1)
  1. MUCINEX [Suspect]
     Indication: INCREASED BRONCHIAL SECRETION
     Dosage: 600 MG BID BY MOUTH
     Route: 048
     Dates: start: 20100101

REACTIONS (1)
  - OEDEMA PERIPHERAL [None]
